FAERS Safety Report 23827695 (Version 5)
Quarter: 2024Q3

REPORT INFORMATION
  Report Type: Spontaneous
  Country: GB (occurrence: GB)
  Receive Date: 20240507
  Receipt Date: 20240730
  Transmission Date: 20241017
  Serious: Yes (Hospitalization, Other)
  Sender: MYLAN
  Company Number: GB-MYLANLABS-2024M1036395

PATIENT
  Age: 49 Year
  Sex: Male

DRUGS (3)
  1. CLOZARIL [Suspect]
     Active Substance: CLOZAPINE
     Indication: Schizophrenia
     Dosage: 150 MILLIGRAM, QD (OD)
     Route: 048
     Dates: start: 20020405, end: 20240415
  2. CLOZARIL [Suspect]
     Active Substance: CLOZAPINE
     Dosage: UNK
     Route: 048
     Dates: start: 20240430, end: 20240524
  3. CLOZARIL [Suspect]
     Active Substance: CLOZAPINE
     Dosage: UNK
     Route: 048
     Dates: end: 20240630

REACTIONS (11)
  - Respiratory tract infection [Recovered/Resolved]
  - Sepsis [Recovered/Resolved]
  - Respiratory arrest [Unknown]
  - Neutropenia [Recovered/Resolved]
  - Platelet count increased [Recovered/Resolved]
  - Eosinophilia [Recovered/Resolved]
  - Malaise [Unknown]
  - General physical health deterioration [Unknown]
  - Eosinophil count decreased [Not Recovered/Not Resolved]
  - Haemoglobin decreased [Recovering/Resolving]
  - White blood cell count decreased [Recovered/Resolved]

NARRATIVE: CASE EVENT DATE: 20240321
